FAERS Safety Report 5984156-5 (Version None)
Quarter: 2008Q4

REPORT INFORMATION
  Report Type: 
  Country: None (occurrence: None)
  Receive Date: 20081208
  Receipt Date: 20081020
  Transmission Date: 20090506
  Serious: Yes (Other)
  Sender: FDA-Public Use
  Company Number: US-AMGEN-QUU311027

PATIENT
  Sex: Male
  Weight: 102.2 kg

DRUGS (4)
  1. ENBREL [Suspect]
     Indication: ANKYLOSING SPONDYLITIS
     Route: 058
     Dates: start: 20051101
  2. SULFASALAZINE [Concomitant]
     Route: 048
     Dates: start: 20081001
  3. NAPROXEN [Concomitant]
  4. OMEPRAZOLE [Concomitant]

REACTIONS (8)
  - ANXIETY [None]
  - COUGH [None]
  - DEPRESSION [None]
  - EAR INFECTION [None]
  - HEADACHE [None]
  - OBSESSIVE THOUGHTS [None]
  - RHINORRHOEA [None]
  - SINUSITIS [None]
